FAERS Safety Report 7405692-0 (Version None)
Quarter: 2011Q2

REPORT INFORMATION
  Report Type: 
  Country: None (occurrence: None)
  Receive Date: 20110411
  Receipt Date: 20110408
  Transmission Date: 20111010
  Serious: Yes (Disabling, Other)
  Sender: FDA-Public Use
  Company Number: AU-ROCHE-760316

PATIENT
  Sex: Female
  Weight: 67 kg

DRUGS (1)
  1. ACCUTANE [Suspect]
     Route: 048

REACTIONS (3)
  - BIPOLAR DISORDER [None]
  - COLON CANCER [None]
  - DEPRESSION [None]
